FAERS Safety Report 5781862-2 (Version None)
Quarter: 2008Q2

REPORT INFORMATION
  Report Type: 
  Country: None (occurrence: None)
  Receive Date: 20080623
  Receipt Date: 20080623
  Transmission Date: 20081010
  Serious: Yes (Other)
  Sender: FDA-Public Use
  Company Number: A0734301A

PATIENT
  Age: 31 Year
  Sex: Female

DRUGS (2)
  1. ALLI [Suspect]
     Indication: WEIGHT LOSS DIET
     Route: 048
     Dates: end: 20080618
  2. NO CONCURRENT MEDICATION [Concomitant]

REACTIONS (5)
  - BLOOD IRON DECREASED [None]
  - BLOOD TEST ABNORMAL [None]
  - HAEMATOCRIT DECREASED [None]
  - UTERINE LEIOMYOMA [None]
  - VAGINAL HAEMORRHAGE [None]
